FAERS Safety Report 22667259 (Version 4)
Quarter: 2025Q3

REPORT INFORMATION
  Report Type: Spontaneous
  Country: CA (occurrence: CA)
  Receive Date: 20230704
  Receipt Date: 20250925
  Transmission Date: 20251021
  Serious: Yes (Other)
  Sender: AUROBINDO
  Company Number: CA-AUROBINDO-AUR-APL-2023-044598

PATIENT
  Age: 27 Year
  Sex: Female

DRUGS (10)
  1. TRANEXAMIC ACID [Suspect]
     Active Substance: TRANEXAMIC ACID
     Indication: Hereditary angioedema
     Route: 065
  2. HUMAN C1-ESTERASE INHIBITOR [Suspect]
     Active Substance: HUMAN C1-ESTERASE INHIBITOR
     Indication: Hereditary angioedema
     Route: 065
  3. HUMAN C1-ESTERASE INHIBITOR [Suspect]
     Active Substance: HUMAN C1-ESTERASE INHIBITOR
     Indication: Hereditary angioedema
     Route: 065
  4. ICATIBANT ACETATE [Suspect]
     Active Substance: ICATIBANT ACETATE
     Indication: Hereditary angioedema
     Route: 065
  5. LANADELUMAB [Suspect]
     Active Substance: LANADELUMAB
     Indication: Hereditary angioedema
     Route: 058
  6. LANADELUMAB [Suspect]
     Active Substance: LANADELUMAB
     Route: 058
  7. LANADELUMAB [Suspect]
     Active Substance: LANADELUMAB
     Indication: Hereditary angioedema
     Route: 058
  8. LANADELUMAB [Suspect]
     Active Substance: LANADELUMAB
     Route: 058
  9. FIRAZYR [Suspect]
     Active Substance: ICATIBANT ACETATE
     Indication: Hereditary angioedema
     Route: 058
  10. OMALIZUMAB [Concomitant]
     Active Substance: OMALIZUMAB
     Indication: Product used for unknown indication
     Route: 050

REACTIONS (8)
  - Choking sensation [Recovered/Resolved]
  - Contusion [Recovered/Resolved]
  - Dysphagia [Recovered/Resolved]
  - Hereditary angioedema [Recovered/Resolved]
  - Poor venous access [Recovered/Resolved]
  - Systemic lupus erythematosus [Recovered/Resolved]
  - Swelling face [Recovered/Resolved]
  - Therapeutic product effect decreased [Recovered/Resolved]
